FAERS Safety Report 8918847 (Version 1)
Quarter: 2012Q4

REPORT INFORMATION
  Report Type: Spontaneous
  Country: US (occurrence: None)
  Receive Date: 20121115
  Receipt Date: 20121115
  Transmission Date: 20130627
  Serious: Yes (Hospitalization)
  Sender: FDA-Public Use
  Company Number: None

PATIENT
  Sex: Female
  Weight: 23 kg

DRUGS (2)
  1. ETOPOSIDE [Suspect]
  2. IFOSFAMIDE [Suspect]

REACTIONS (7)
  - Pyrexia [None]
  - Abdominal pain [None]
  - Necrotising fasciitis [None]
  - Haemodynamic instability [None]
  - Convulsion [None]
  - Hyponatraemia [None]
  - Dehydration [None]
